FAERS Safety Report 4366844-X (Version None)
Quarter: 2004Q2

REPORT INFORMATION
  Report Type: 
  Country: None (occurrence: None)
  Receive Date: 20040528
  Receipt Date: 20040115
  Transmission Date: 20050107
  Serious: No
  Sender: FDA-Public Use
  Company Number: US-GLAXOSMITHKLINE-A0493477A

PATIENT
  Age: 55 Year
  Sex: Female

DRUGS (1)
  1. BACTROBAN [Suspect]
     Dosage: 1APP TWICE PER DAY
     Route: 061
     Dates: start: 20030108, end: 20030112

REACTIONS (6)
  - APPLICATION SITE BURNING [None]
  - BLISTER [None]
  - ERYTHEMA [None]
  - FEELING HOT [None]
  - HAEMORRHAGE [None]
  - OEDEMA PERIPHERAL [None]
